FAERS Safety Report 15553877 (Version 1)
Quarter: 2018Q4

REPORT INFORMATION
  Report Type: Spontaneous
  Country: US (occurrence: US)
  Receive Date: 20181022
  Receipt Date: 20181022
  Transmission Date: 20190205
  Serious: Yes (Other)
  Sender: FDA-Public Use
  Company Number: None

PATIENT
  Age: 70 Year
  Sex: Female
  Weight: 117.93 kg

DRUGS (10)
  1. MELOXICAM 15MG [Suspect]
     Active Substance: MELOXICAM
     Indication: ARTHRITIS
     Dosage: ?          QUANTITY:30 DF DOSAGE FORM;?
     Route: 048
     Dates: start: 20180717, end: 20180720
  2. HYDROCHLOROTHIAZIDE. [Concomitant]
     Active Substance: HYDROCHLOROTHIAZIDE
  3. ABILIFY [Concomitant]
     Active Substance: ARIPIPRAZOLE
  4. DULCOLAX NOS [Concomitant]
     Active Substance: BISACODYL OR DOCUSATE SODIUM
  5. MULTI-VITAMINS-MINERAL [Concomitant]
  6. SPIRONOLACTONE. [Concomitant]
     Active Substance: SPIRONOLACTONE
  7. NITROSTAT [Concomitant]
     Active Substance: NITROGLYCERIN
  8. NITROGLYCERINE [Concomitant]
     Active Substance: NITROGLYCERIN
  9. ASPRIN [Concomitant]
     Active Substance: ASPIRIN
  10. TUMS [Concomitant]
     Active Substance: CALCIUM CARBONATE

REACTIONS (5)
  - Gait disturbance [None]
  - Fluid retention [None]
  - Oedema peripheral [None]
  - Musculoskeletal disorder [None]
  - Cardiac disorder [None]

NARRATIVE: CASE EVENT DATE: 20180717
